FAERS Safety Report 8645582 (Version 4)
Quarter: 2013Q1

REPORT INFORMATION
  Report Type: Spontaneous
  Country: US (occurrence: US)
  Receive Date: 20120702
  Receipt Date: 20130214
  Transmission Date: 20140127
  Serious: Yes (Other)
  Sender: FDA-Public Use
  Company Number: US-PFIZER INC-2012154039

PATIENT
  Age: 58 Year
  Sex: Female

DRUGS (26)
  1. LYRICA [Suspect]
     Dosage: 100 MG, 2X/DAY
  2. LYRICA [Suspect]
     Dosage: 150 MG, 2X/DAY
     Route: 048
  3. SPIRIVA [Suspect]
     Dosage: 18 UG, UNK
  4. DETROL LA [Suspect]
     Dosage: 4 MG, UNK
  5. SPIRONOLACTONE [Concomitant]
     Dosage: 25 MG, UNK
  6. POTASSIUM GLUCONATE [Concomitant]
     Dosage: 100 MG, UNK
  7. NIACIN FLUSH FREE [Concomitant]
     Dosage: 500 MG, UNK
  8. SIMVASTATIN [Concomitant]
     Dosage: 40 MG, UNK
  9. CITALOPRAM HYDROBROMIDE [Concomitant]
     Dosage: 20 MG, UNK
  10. FUROSEMIDE [Concomitant]
     Dosage: 80 MG, UNK
  11. DILTIAZEM HYDROCHLORIDE [Concomitant]
     Dosage: 120 MG, UNK
  12. PROMETHAZINE HYDROCHLORIDE [Concomitant]
     Dosage: 25 MG, UNK
  13. RANITIDINE HYDROCHLORIDE [Concomitant]
     Dosage: 150
  14. NEXIUM [Concomitant]
     Dosage: 40 MG, UNK
  15. ALBUTEROL SULFATE [Concomitant]
     Dosage: 0.083 %, (2.5 MG/3ML)
  16. SPIRIVA HANDIHALER [Concomitant]
     Dosage: 18 UG, UNK
  17. LORATADINE [Concomitant]
     Dosage: 10 MG, UNK
  18. DETROL LA [Concomitant]
     Dosage: 4 MG, UNK
  19. CYCLOBENZAPRINE HYDROCHLORIDE [Concomitant]
     Dosage: 10 MG, UNK
  20. SINGULAIR [Concomitant]
     Dosage: 10 MG, UNK
  21. HUMULIN R [Concomitant]
     Dosage: 100 UNIT/ML
  22. LEVEMIR FLEXPEN [Concomitant]
     Dosage: 100 UNIT/ML SOLUTION
  23. HYDROCODONE W/ACETAMINOPHEN [Concomitant]
     Dosage: 7.5-500 MG
  24. CEPHALEXIN [Concomitant]
     Dosage: 500 MG, UNK
  25. PRAVACHOL [Concomitant]
     Dosage: 40 MG, UNK
  26. MOBIC [Concomitant]
     Dosage: 7.5 MG, UNK
     Route: 048

REACTIONS (16)
  - Type 2 diabetes mellitus [Unknown]
  - Chronic obstructive pulmonary disease [Unknown]
  - Essential hypertension [Unknown]
  - Hyperlipidaemia [Unknown]
  - Diabetic neuropathy [Unknown]
  - Obesity [Unknown]
  - Gastrooesophageal reflux disease [Unknown]
  - Dysuria [Unknown]
  - Oedema [Unknown]
  - Rhinitis allergic [Unknown]
  - Arthropathy [Unknown]
  - Depression [Unknown]
  - Hypertonic bladder [Unknown]
  - Asthma [Unknown]
  - Nausea [Unknown]
  - Diabetic neuropathy [Unknown]
